FAERS Safety Report 21326748 (Version 1)
Quarter: 2022Q3

REPORT INFORMATION
  Report Type: Spontaneous
  Country: GB (occurrence: GB)
  Receive Date: 20220913
  Receipt Date: 20220913
  Transmission Date: 20221027
  Serious: Yes (Other)
  Sender: FDA-Public Use
  Company Number: GB-MHRA-MED-202208310917293070-YMZRF

PATIENT
  Age: 27 Year
  Sex: Female

DRUGS (1)
  1. ARIPIPRAZOLE [Suspect]
     Active Substance: ARIPIPRAZOLE
     Indication: Psychotic disorder
     Dosage: 15 MILLIGRAM, (15 MG OD PO)ONCE A DAY
     Route: 065
     Dates: start: 20220520, end: 20220628

REACTIONS (1)
  - Catatonia [Recovered/Resolved]

NARRATIVE: CASE EVENT DATE: 20220628
